FAERS Safety Report 20549070 (Version 1)
Quarter: 2022Q1

REPORT INFORMATION
  Report Type: Spontaneous
  Country: US (occurrence: US)
  Receive Date: 20220303
  Receipt Date: 20220303
  Transmission Date: 20220424
  Serious: No
  Sender: FDA-Public Use
  Company Number: US-BRAINTREE LABORATORIES, INC.-2022BTE00083

PATIENT
  Age: 76 Year
  Sex: Male
  Weight: 81.193 kg

DRUGS (7)
  1. SUTAB [Suspect]
     Active Substance: MAGNESIUM SULFATE\POTASSIUM CHLORIDE\SODIUM SULFATE
     Indication: Colonoscopy
     Dosage: 2 X 12 TABLETS, 1X
     Route: 048
     Dates: start: 20220127, end: 20220128
  2. ASPIRIN [Concomitant]
     Active Substance: ASPIRIN
     Dosage: 81 MG, EVERY OTHER DAY
  3. CARVEDILOL [Concomitant]
     Active Substance: CARVEDILOL
  4. ATORVASTATIN [Concomitant]
     Active Substance: ATORVASTATIN
  5. VITAMIN B12 [Concomitant]
     Active Substance: CYANOCOBALAMIN
  6. VITAMIN C [Concomitant]
     Active Substance: ASCORBIC ACID
  7. VITAMIN D [Concomitant]
     Active Substance: VITAMIN D NOS

REACTIONS (3)
  - Drug ineffective [Recovered/Resolved]
  - Nausea [Recovered/Resolved]
  - Abdominal pain upper [Recovered/Resolved]

NARRATIVE: CASE EVENT DATE: 20220127
